FAERS Safety Report 11581716 (Version 1)
Quarter: 2015Q4

REPORT INFORMATION
  Report Type: Spontaneous
  Country: US (occurrence: US)
  Receive Date: 20151001
  Receipt Date: 20151001
  Transmission Date: 20160304
  Serious: No
  Sender: FDA-Public Use
  Company Number: US-ROCHE-659246

PATIENT
  Age: 53 Year
  Sex: Female

DRUGS (3)
  1. NEUPOGEN [Suspect]
     Active Substance: FILGRASTIM
     Indication: WHITE BLOOD CELL COUNT DECREASED
     Route: 065
  2. RIBAVIRIN. [Suspect]
     Active Substance: RIBAVIRIN
     Indication: HEPATITIS C
     Dosage: DIVIDED DOSES BY MOUTH
     Route: 048
  3. PEGASYS [Suspect]
     Active Substance: PEGINTERFERON ALFA-2A
     Indication: HEPATITIS C
     Dosage: PRE-FILLED SYRINGE
     Route: 065

REACTIONS (16)
  - Fatigue [Not Recovered/Not Resolved]
  - Stress [Unknown]
  - Mouth ulceration [Recovering/Resolving]
  - Dyspepsia [Not Recovered/Not Resolved]
  - White blood cell count decreased [Not Recovered/Not Resolved]
  - Diarrhoea [Not Recovered/Not Resolved]
  - Dermatitis allergic [Unknown]
  - Platelet count decreased [Not Recovered/Not Resolved]
  - Skin reaction [Unknown]
  - Hypogeusia [Not Recovered/Not Resolved]
  - Candida infection [Unknown]
  - Abdominal pain upper [Not Recovered/Not Resolved]
  - Contusion [Recovering/Resolving]
  - Spider naevus [Unknown]
  - Tongue discolouration [Unknown]
  - Pruritus [Unknown]

NARRATIVE: CASE EVENT DATE: 200908
